FAERS Safety Report 7288830-2 (Version None)
Quarter: 2011Q1

REPORT INFORMATION
  Report Type: 
  Country: None (occurrence: None)
  Receive Date: 20110211
  Receipt Date: 20110204
  Transmission Date: 20110831
  Serious: Yes (Life-Threatening, Hospitalization)
  Sender: FDA-Public Use
  Company Number: GB-MERCK-1005GBR00092

PATIENT
  Age: 52 Year
  Sex: Male

DRUGS (7)
  1. AMLODIPINE [Concomitant]
     Route: 065
  2. ZOCOR [Suspect]
     Route: 048
  3. INSULIN LISPRO, BIPHASIC ISOPHANE [INJECTION] [Concomitant]
     Route: 065
  4. FUSIDIC ACID [Suspect]
     Indication: LOCALISED INFECTION
     Route: 065
  5. INSULIN LISPRO, BIPHASIC ISOPHANE [INJECTION] [Concomitant]
     Indication: DIABETES MELLITUS
     Route: 065
  6. FUSIDIC ACID [Suspect]
     Indication: OSTEOMYELITIS
     Route: 065
  7. FLOXACILLIN [Concomitant]
     Indication: OSTEOMYELITIS
     Route: 065

REACTIONS (2)
  - RHABDOMYOLYSIS [None]
  - DRUG INTERACTION [None]
